FAERS Safety Report 15525805 (Version 1)
Quarter: 2018Q4

REPORT INFORMATION
  Report Type: Spontaneous
  Country: CN (occurrence: CN)
  Receive Date: 20181018
  Receipt Date: 20181018
  Transmission Date: 20190205
  Serious: Yes (Other)
  Sender: FDA-Public Use
  Company Number: CN-ABBVIE-18P-035-2523869-00

PATIENT
  Age: 40 Year
  Sex: Male
  Weight: 75 kg

DRUGS (2)
  1. ANALGIN [FENPIVERINIUM BROMIDE;METAMIZOLE SODIUM;PITOFENONE HYDROCHLORIDE] [Suspect]
     Active Substance: FENPIVERINIUM BROMIDE\METAMIZOLE SODIUM\PITOFENONE HYDROCHLORIDE
     Indication: ARTHRITIS
     Route: 048
     Dates: start: 20180731, end: 20180806
  2. KLACID [Suspect]
     Active Substance: CLARITHROMYCIN
     Indication: OROPHARYNGEAL PAIN
     Route: 048
     Dates: start: 20180731, end: 20180806

REACTIONS (1)
  - Drug eruption [Recovering/Resolving]

NARRATIVE: CASE EVENT DATE: 20180812
